FAERS Safety Report 5866527-0 (Version None)
Quarter: 2008Q3

REPORT INFORMATION
  Report Type: 
  Country: None (occurrence: None)
  Receive Date: 20080902
  Receipt Date: 20080902
  Transmission Date: 20090109
  Serious: Yes (Hospitalization)
  Sender: FDA-Public Use
  Company Number: PHEH1995US03117

PATIENT
  Sex: Female
  Weight: 71 kg

DRUGS (4)
  1. SANDIMMUNE [Suspect]
     Dates: start: 19950409
  2. PROCARDIA [Concomitant]
  3. PREDNISONE TAB [Concomitant]
  4. IMURAN [Concomitant]

REACTIONS (9)
  - LIVER FUNCTION TEST ABNORMAL [None]
  - MYOCARDIAL INFARCTION [None]
  - PLEURAL EFFUSION [None]
  - PYREXIA [None]
  - RENAL FAILURE ACUTE [None]
  - SEPSIS [None]
  - TACHYCARDIA [None]
  - TACHYPNOEA [None]
  - WHEEZING [None]
